FAERS Safety Report 7351253-1 (Version None)
Quarter: 2011Q1

REPORT INFORMATION
  Report Type: 
  Country: None (occurrence: None)
  Receive Date: 20110314
  Receipt Date: 20110303
  Transmission Date: 20110831
  Serious: Yes (Disabling, Other)
  Sender: FDA-Public Use
  Company Number: JP-PFIZER INC-2011054451

PATIENT
  Sex: Male

DRUGS (5)
  1. LIPITOR [Suspect]
     Dosage: 10 MG, DAILY
     Route: 048
  2. PLAVIX [Concomitant]
     Dosage: UNK
     Route: 048
     Dates: start: 20101231
  3. ASPIRIN [Concomitant]
     Dosage: UNK
     Dates: start: 20101231
  4. ARTIST [Concomitant]
     Route: 048
  5. LAFUTIDINE [Concomitant]
     Dosage: UNK
     Route: 048

REACTIONS (2)
  - HEPATIC FUNCTION ABNORMAL [None]
  - EOSINOPHIL COUNT INCREASED [None]
